FAERS Safety Report 4692939-7 (Version None)
Quarter: 2005Q2

REPORT INFORMATION
  Report Type: 
  Country: None (occurrence: None)
  Receive Date: 20050615
  Receipt Date: 20050603
  Transmission Date: 20051028
  Serious: No
  Sender: FDA-Public Use
  Company Number: 430042K05USA

PATIENT
  Age: 34 Year
  Sex: Female

DRUGS (1)
  1. NOVANTRONE [Suspect]
     Indication: MULTIPLE SCLEROSIS
     Dates: start: 20030114, end: 20031201

REACTIONS (3)
  - CARDIAC MURMUR [None]
  - CARDIAC VALVE DISEASE [None]
  - EJECTION FRACTION DECREASED [None]
